FAERS Safety Report 18093098 (Version 2)
Quarter: 2020Q3

REPORT INFORMATION
  Report Type: Spontaneous
  Country: US (occurrence: US)
  Receive Date: 20200730
  Receipt Date: 20200914
  Transmission Date: 20201103
  Serious: Yes (Other)
  Sender: FDA-Public Use
  Company Number: US-PFIZER INC-2020284415

PATIENT
  Age: 65 Year
  Sex: Female

DRUGS (1)
  1. KERYDIN [Suspect]
     Active Substance: TAVABOROLE
     Dosage: UNK
     Dates: start: 20200723, end: 20200723

REACTIONS (3)
  - Device leakage [Unknown]
  - Pyelonephritis [Unknown]
  - Poor quality device used [Unknown]

NARRATIVE: CASE EVENT DATE: 202007
